FAERS Safety Report 7001919-8 (Version None)
Quarter: 2010Q3

REPORT INFORMATION
  Report Type: 
  Country: None (occurrence: None)
  Receive Date: 20100920
  Receipt Date: 20100910
  Transmission Date: 20110219
  Serious: Yes (Death, Hospitalization)
  Sender: FDA-Public Use
  Company Number: A0802192A

PATIENT
  Age: 78 Year
  Sex: Female
  Weight: 90.9 kg

DRUGS (12)
  1. AVANDIA [Suspect]
     Dosage: 4MG PER DAY
     Route: 048
     Dates: start: 20020807, end: 20050318
  2. LEVOTHYROXINE SODIUM [Concomitant]
  3. LIPITOR [Concomitant]
  4. NORVASC [Concomitant]
  5. ACIPHEX [Concomitant]
  6. ADVAIR DISKUS 100/50 [Concomitant]
  7. ACIPHEX [Concomitant]
  8. SYNTHROID [Concomitant]
  9. DYAZIDE [Concomitant]
  10. CLONIDINE [Concomitant]
  11. GLYBURIDE [Concomitant]
  12. ZANTAC [Concomitant]

REACTIONS (4)
  - ATRIAL FIBRILLATION [None]
  - CARDIAC FAILURE CONGESTIVE [None]
  - MYOCARDIAL INFARCTION [None]
  - PULMONARY ARTERIAL HYPERTENSION [None]
